FAERS Safety Report 14280379 (Version 1)
Quarter: 2017Q4

REPORT INFORMATION
  Report Type: Spontaneous
  Country: US (occurrence: US)
  Receive Date: 20171213
  Receipt Date: 20171213
  Transmission Date: 20180321
  Serious: Yes (Hospitalization)
  Sender: FDA-Public Use
  Company Number: US-DRREDDYS-USA/USA/17/0094844

PATIENT
  Age: 18 Year
  Sex: Male
  Weight: 57 kg

DRUGS (4)
  1. CITALOPRAM [Suspect]
     Active Substance: CITALOPRAM HYDROBROMIDE
     Indication: PRODUCT USED FOR UNKNOWN INDICATION
     Route: 065
  2. TACROLIMUS. [Suspect]
     Active Substance: TACROLIMUS
     Indication: PRODUCT USED FOR UNKNOWN INDICATION
     Route: 065
  3. ONDANSETRON [Suspect]
     Active Substance: ONDANSETRON
     Indication: PRODUCT USED FOR UNKNOWN INDICATION
     Route: 065
  4. VORICONAZOLE. [Suspect]
     Active Substance: VORICONAZOLE
     Indication: PRODUCT USED FOR UNKNOWN INDICATION
     Route: 065

REACTIONS (16)
  - Pancytopenia [Unknown]
  - Pericardial effusion [Unknown]
  - Renal failure [Unknown]
  - Electrocardiogram QT prolonged [Unknown]
  - Liver function test increased [Unknown]
  - Respiratory failure [Unknown]
  - Atrial fibrillation [Unknown]
  - Hypocalcaemia [Unknown]
  - Haemodynamic instability [Unknown]
  - Septic shock [Unknown]
  - Venoocclusive liver disease [Unknown]
  - Atrial flutter [Unknown]
  - Sinus tachycardia [Unknown]
  - Neutropenia [Unknown]
  - Graft versus host disease in gastrointestinal tract [Unknown]
  - Hyperglycaemia [Unknown]
